FAERS Safety Report 24214333 (Version 1)
Quarter: 2024Q3

REPORT INFORMATION
  Report Type: Spontaneous
  Country: US (occurrence: US)
  Receive Date: 20240815
  Receipt Date: 20240815
  Transmission Date: 20241017
  Serious: Yes (Hospitalization, Other)
  Sender: PFIZER
  Company Number: US-PFIZER INC-PV202400105560

PATIENT
  Age: 28 Year
  Sex: Male

DRUGS (11)
  1. KETAMINE HYDROCHLORIDE [Suspect]
     Active Substance: KETAMINE HYDROCHLORIDE
     Indication: Hallucination
     Dosage: 1 G, MONTHLY
     Route: 045
     Dates: start: 201910
  2. KETAMINE HYDROCHLORIDE [Suspect]
     Active Substance: KETAMINE HYDROCHLORIDE
     Indication: Dissociation
     Dosage: 1 G, WEEKLY
     Route: 045
     Dates: start: 202105
  3. KETAMINE HYDROCHLORIDE [Suspect]
     Active Substance: KETAMINE HYDROCHLORIDE
     Dosage: 3.5 G, WEEKLY
     Route: 045
     Dates: start: 202202
  4. KETAMINE HYDROCHLORIDE [Suspect]
     Active Substance: KETAMINE HYDROCHLORIDE
     Indication: Hallucination
     Dosage: UNK
     Route: 030
     Dates: start: 202301
  5. KETAMINE HYDROCHLORIDE [Suspect]
     Active Substance: KETAMINE HYDROCHLORIDE
     Indication: Dissociation
     Dosage: 1-2 G, DAILY
     Route: 042
     Dates: start: 202304, end: 2023
  6. PSILOCYBIN [Concomitant]
     Active Substance: PSILOCYBIN
     Dosage: UNK
     Dates: start: 2022, end: 2023
  7. LYSERGIDE [Concomitant]
     Active Substance: LYSERGIDE
     Dosage: UNK
     Dates: start: 2022, end: 2023
  8. MIDOMAFETAMINE [Concomitant]
     Active Substance: MIDOMAFETAMINE
     Dosage: UNK
     Dates: start: 2022, end: 2023
  9. ALPRAZOLAM [Concomitant]
     Active Substance: ALPRAZOLAM
     Dosage: UNK
     Dates: start: 2022, end: 2023
  10. BUPROPION [Concomitant]
     Active Substance: BUPROPION
     Indication: Major depression
     Dosage: 150 MG, 1X/DAY
     Dates: start: 202206, end: 202208
  11. VORTIOXETINE [Concomitant]
     Active Substance: VORTIOXETINE HYDROBROMIDE
     Indication: Major depression
     Dosage: UNK
     Dates: start: 202305

REACTIONS (4)
  - Intentional product misuse [Not Recovered/Not Resolved]
  - Drug use disorder [Not Recovered/Not Resolved]
  - Abdominal pain [Unknown]
  - Haematuria [Unknown]

NARRATIVE: CASE EVENT DATE: 20191001
